FAERS Safety Report 19291474 (Version 1)
Quarter: 2021Q2

REPORT INFORMATION
  Report Type: Spontaneous
  Country: US (occurrence: US)
  Receive Date: 20210523
  Receipt Date: 20210523
  Transmission Date: 20210717
  Serious: No
  Sender: FDA-Public Use
  Company Number: US-ELI_LILLY_AND_COMPANY-US202105007817

PATIENT
  Sex: Female

DRUGS (2)
  1. LANTUS [Concomitant]
     Active Substance: INSULIN GLARGINE
  2. INSULIN LISPRO [Suspect]
     Active Substance: INSULIN LISPRO
     Indication: DIABETES MELLITUS
     Dosage: 10 U, TID
     Route: 058

REACTIONS (10)
  - Abdominal pain upper [Recovered/Resolved]
  - Discomfort [Unknown]
  - Dysstasia [Unknown]
  - Feeling abnormal [Recovered/Resolved]
  - Illness [Unknown]
  - Drug ineffective [Recovered/Resolved]
  - Blood glucose increased [Unknown]
  - Sleep disorder [Recovered/Resolved]
  - Frequent bowel movements [Unknown]
  - Chest discomfort [Recovered/Resolved]
